FAERS Safety Report 6481346-2 (Version None)
Quarter: 2009Q4

REPORT INFORMATION
  Report Type: 
  Country: None (occurrence: None)
  Receive Date: 20091208
  Receipt Date: 20091124
  Transmission Date: 20100525
  Serious: Yes (Other)
  Sender: FDA-Public Use
  Company Number: B0609101A

PATIENT
  Age: 2 Year
  Sex: Female

DRUGS (9)
  1. MELPHALAN [Suspect]
     Route: 042
  2. VINCRISTINE [Suspect]
  3. DOXORUBICIN [Suspect]
  4. CYCLOPHOSPHAMIDE [Suspect]
  5. IFOSFAMIDE [Suspect]
  6. ETOPOSIDE [Suspect]
  7. IRRADIATION [Suspect]
  8. BUSULPHAN [Suspect]
  9. L-PHENYLALANINE [Suspect]

REACTIONS (4)
  - FANCONI SYNDROME [None]
  - GLUCOSE URINE PRESENT [None]
  - INTERSTITIAL LUNG DISEASE [None]
  - PROTEIN URINE [None]
